FAERS Safety Report 13673761 (Version 2)
Quarter: 2017Q3

REPORT INFORMATION
  Report Type: Spontaneous
  Country: FR (occurrence: FR)
  Receive Date: 20170621
  Receipt Date: 20170912
  Transmission Date: 20171127
  Serious: No
  Sender: FDA-Public Use
  Company Number: FR-AMGEN-FRASP2017091495

PATIENT
  Sex: Female

DRUGS (1)
  1. MIMPARA [Suspect]
     Active Substance: CINACALCET HYDROCHLORIDE
     Indication: HYPERPARATHYROIDISM
     Dosage: 150 MG, UNK
     Route: 048

REACTIONS (3)
  - Hypercalcaemia [Unknown]
  - Hyperparathyroidism [Unknown]
  - Drug ineffective [Unknown]
